FAERS Safety Report 4941894-0 (Version None)
Quarter: 2006Q1

REPORT INFORMATION
  Report Type: 
  Country: None (occurrence: None)
  Receive Date: 20060307
  Receipt Date: 20060301
  Transmission Date: 20060701
  Serious: Yes (Other)
  Sender: FDA-Public Use
  Company Number: S06-USA-00487-01

PATIENT
  Age: 1 Month
  Sex: Male

DRUGS (2)
  1. LEXAPRO [Suspect]
     Dates: start: 20040301, end: 20041201
  2. MIRCETTE [Suspect]
     Dates: start: 20040301, end: 20041201

REACTIONS (7)
  - ABNORMAL BEHAVIOUR [None]
  - DIVORCED PARENTS [None]
  - DRUG EXPOSURE VIA BREAST MILK [None]
  - FAILURE TO THRIVE [None]
  - SUPPRESSED LACTATION [None]
  - TREATMENT NONCOMPLIANCE [None]
  - WEIGHT GAIN POOR [None]
